FAERS Safety Report 9350168 (Version 1)
Quarter: 2013Q2

REPORT INFORMATION
  Report Type: Report from Study
  Country: DE (occurrence: DE)
  Receive Date: 20130617
  Receipt Date: 20130617
  Transmission Date: 20140414
  Serious: Yes (Hospitalization)
  Sender: FDA-Public Use
  Company Number: DE-ROCHE-744720

PATIENT
  Age: 54 Year
  Sex: Male
  Weight: 81.7 kg

DRUGS (5)
  1. RIBAVIRIN [Suspect]
     Indication: CHRONIC HEPATITIS C
     Route: 048
     Dates: start: 20081009, end: 20100823
  2. PEG-INTERFERON ALFA 2A [Suspect]
     Indication: CHRONIC HEPATITIS C
     Route: 065
  3. DIGITOXIN [Concomitant]
     Indication: ATRIAL FIBRILLATION
     Route: 048
  4. ASS (GERMANY) [Concomitant]
     Indication: ATRIAL FIBRILLATION
     Route: 048
  5. RAMIPRIL [Concomitant]
     Indication: HYPERTENSION
     Route: 048

REACTIONS (1)
  - Convulsion [Recovered/Resolved]
